FAERS Safety Report 10023336 (Version 2)
Quarter: 2014Q2

REPORT INFORMATION
  Report Type: Spontaneous
  Country: US (occurrence: US)
  Receive Date: 20140320
  Receipt Date: 20140505
  Transmission Date: 20141212
  Serious: No
  Sender: FDA-Public Use
  Company Number: US-009507513-1403USA008727

PATIENT
  Age: 78 Year
  Sex: Male

DRUGS (1)
  1. DULERA [Suspect]
     Dosage: 2 PUFFS, TWO TIMES DAILY, STRENGTH 200 MCG/5 MCG
     Route: 048
     Dates: start: 201310

REACTIONS (5)
  - Incorrect dose administered [Unknown]
  - Product quality issue [Unknown]
  - Drug dose omission [Unknown]
  - Incorrect route of drug administration [Unknown]
  - No adverse event [Unknown]
